FAERS Safety Report 15907725 (Version 2)
Quarter: 2019Q1

REPORT INFORMATION
  Report Type: Spontaneous
  Country: US (occurrence: US)
  Receive Date: 20190204
  Receipt Date: 20190318
  Transmission Date: 20190417
  Serious: Yes (Other)
  Sender: FDA-Public Use
  Company Number: US-TEVA-2019-US-1005863

PATIENT
  Age: 16 Year
  Sex: Female

DRUGS (1)
  1. ENOXAPARIN [Suspect]
     Active Substance: ENOXAPARIN
     Indication: COAGULOPATHY
     Dosage: 120 MILLIGRAM DAILY; 60 MG / 0.6 ML
     Route: 065
     Dates: start: 201801

REACTIONS (5)
  - Anti factor X activity increased [Unknown]
  - Pallor [Unknown]
  - Extra dose administered [Unknown]
  - Mouth haemorrhage [Unknown]
  - Tremor [Unknown]

NARRATIVE: CASE EVENT DATE: 20190119
